FAERS Safety Report 9053366 (Version 1)
Quarter: 2013Q1

REPORT INFORMATION
  Report Type: Spontaneous
  Country: IT (occurrence: IT)
  Receive Date: 20130207
  Receipt Date: 20130207
  Transmission Date: 20140127
  Serious: Yes (Hospitalization)
  Sender: FDA-Public Use
  Company Number: IT-ASTRAZENECA-2013SE07660

PATIENT
  Age: 32174 Day
  Sex: Female

DRUGS (6)
  1. ATENOLOL [Suspect]
     Route: 048
     Dates: start: 20111022, end: 20121021
  2. LASIX [Concomitant]
  3. ASCRIPTIN [Concomitant]
  4. MINITRAN [Concomitant]
     Dosage: 5 MG/24 H TRANSDERMAL PATCH
     Route: 062
  5. OMEPRAZOLE [Concomitant]
  6. AMLODIPINE [Concomitant]

REACTIONS (1)
  - Sinus bradycardia [Not Recovered/Not Resolved]
